FAERS Safety Report 14908532 (Version 2)
Quarter: 2018Q3

REPORT INFORMATION
  Report Type: Spontaneous
  Country: IT (occurrence: IT)
  Receive Date: 20180517
  Receipt Date: 20180809
  Transmission Date: 20181010
  Serious: Yes (Death, Hospitalization)
  Sender: FDA-Public Use
  Company Number: IT-JNJFOC-20180519876

PATIENT
  Age: 83 Year
  Sex: Male

DRUGS (12)
  1. EPARGRISEOVIT [Concomitant]
     Active Substance: ASCORBIC ACID\CYANOCOBALAMIN\FOLIC ACID\NIACINAMIDE
     Indication: ANAEMIA
     Route: 030
     Dates: start: 20180328, end: 20180403
  2. DURVALUMAB. [Suspect]
     Active Substance: DURVALUMAB
     Indication: BLADDER TRANSITIONAL CELL CARCINOMA
     Route: 042
     Dates: end: 20180412
  3. EDOXABAN [Concomitant]
     Active Substance: EDOXABAN TOSYLATE
     Indication: ATRIAL FIBRILLATION
     Route: 048
     Dates: start: 2008, end: 20180401
  4. PARACETAMOL [Concomitant]
     Active Substance: ACETAMINOPHEN
     Indication: PELVIC PAIN
     Route: 048
     Dates: start: 20180314, end: 20180403
  5. MICARDIS [Concomitant]
     Active Substance: TELMISARTAN
     Indication: ATRIAL FIBRILLATION
     Route: 048
     Dates: start: 2008, end: 20180406
  6. TOTALIP [Concomitant]
     Active Substance: ATORVASTATIN
     Indication: DYSLIPIDAEMIA
     Route: 048
     Dates: start: 2008
  7. FENTANYL. [Suspect]
     Active Substance: FENTANYL
     Indication: PELVIC PAIN
     Route: 062
     Dates: start: 20180402, end: 20180404
  8. SIDERAL [Concomitant]
     Indication: ANAEMIA
     Route: 048
     Dates: start: 20180302
  9. FENTANYL. [Suspect]
     Active Substance: FENTANYL
     Indication: PELVIC PAIN
     Route: 062
     Dates: start: 20180328, end: 20180401
  10. TORADOL [Concomitant]
     Active Substance: KETOROLAC TROMETHAMINE
     Indication: PELVIC PAIN
     Route: 030
     Dates: start: 20180314
  11. MOVICOL [Concomitant]
     Active Substance: POLYETHYLENE GLYCOL 3350\POTASSIUM CHLORIDE\SODIUM BICARBONATE\SODIUM CHLORIDE
     Indication: PROPHYLAXIS
     Route: 048
     Dates: start: 20180314, end: 20180403
  12. LASIX [Concomitant]
     Active Substance: FUROSEMIDE
     Indication: HYPERTENSION
     Route: 048
     Dates: start: 2008

REACTIONS (2)
  - Disease progression [Fatal]
  - Somnolence [Recovered/Resolved]

NARRATIVE: CASE EVENT DATE: 20180401
